FAERS Safety Report 24782437 (Version 1)
Quarter: 2024Q4

REPORT INFORMATION
  Report Type: Spontaneous
  Country: US (occurrence: US)
  Receive Date: 20241227
  Receipt Date: 20241227
  Transmission Date: 20250114
  Serious: Yes (Other)
  Sender: BAYER HEALTHCARE LLC
  Company Number: US-BAYER-2024A177870

PATIENT
  Sex: Female

DRUGS (1)
  1. ALKA-SELTZER PLUS COLD DAY AND NIGHT POWERMAX GELS [Suspect]
     Active Substance: ACETAMINOPHEN\DEXTROMETHORPHAN HYDROBROMIDE\DOXYLAMINE SUCCINATE\PHENYLEPHRINE HYDROCHLORIDE
     Route: 048

REACTIONS (3)
  - Foreign body in throat [Unknown]
  - Speech disorder [None]
  - Illness [None]
